FAERS Safety Report 9610975 (Version 2)
Quarter: 2013Q4

REPORT INFORMATION
  Report Type: Spontaneous
  Country: US (occurrence: US)
  Receive Date: 20131009
  Receipt Date: 20131009
  Transmission Date: 20140711
  Serious: No
  Sender: FDA-Public Use
  Company Number: US-AMGEN-USASP2013057789

PATIENT
  Age: 72 Year
  Sex: Female
  Weight: 48.07 kg

DRUGS (9)
  1. PROLIA [Suspect]
     Indication: OSTEOPOROSIS POSTMENOPAUSAL
     Dosage: UNK UNK, Q6MO
     Route: 058
     Dates: start: 20120216
  2. RESTASIS [Concomitant]
     Indication: DRY EYE
     Dosage: 0.05 %, BID
  3. VITAMIN B [Concomitant]
  4. ARIMIDEX [Concomitant]
     Dosage: 1 MG, QD
     Dates: end: 20130719
  5. MELOXICAM [Concomitant]
     Indication: ARTHRITIS
     Dosage: 7.5 MG, QD
     Route: 048
  6. VITAMIN D                          /00107901/ [Concomitant]
     Dosage: 1000 UNIT, QD
  7. PEPCID AC [Concomitant]
     Indication: GASTROOESOPHAGEAL REFLUX DISEASE
     Dosage: 10 MG, BID
     Route: 048
  8. AMLODIPINE BESYLATE [Concomitant]
     Indication: HYPERTENSION
     Dosage: 5 MG, QD
     Route: 048
  9. TUMS                               /00193601/ [Concomitant]
     Dosage: 500 MG, QD

REACTIONS (5)
  - Pain [Not Recovered/Not Resolved]
  - Ear pain [Recovered/Resolved]
  - Headache [Unknown]
  - Pain in jaw [Recovered/Resolved]
  - Upper respiratory tract infection [Unknown]
